FAERS Safety Report 13646069 (Version 1)
Quarter: 2017Q2

REPORT INFORMATION
  Report Type: Spontaneous
  Country: US (occurrence: US)
  Receive Date: 20170612
  Receipt Date: 20170612
  Transmission Date: 20170830
  Serious: Yes (Life-Threatening)
  Sender: FDA-Public Use
  Company Number: None

PATIENT
  Age: 64 Year
  Sex: Male
  Weight: 169.64 kg

DRUGS (1)
  1. VANCOMYCIN [Suspect]
     Active Substance: VANCOMYCIN
     Indication: INFECTION
     Route: 042
     Dates: start: 20170405, end: 20170405

REACTIONS (6)
  - Wheezing [None]
  - Anaphylactic reaction [None]
  - Infusion related reaction [None]
  - Heart rate increased [None]
  - Oxygen saturation decreased [None]
  - Pruritus [None]

NARRATIVE: CASE EVENT DATE: 20170405
